FAERS Safety Report 17560973 (Version 1)
Quarter: 2020Q1

REPORT INFORMATION
  Report Type: Spontaneous
  Country: US (occurrence: US)
  Receive Date: 20200319
  Receipt Date: 20200319
  Transmission Date: 20200409
  Serious: No
  Sender: FDA-Public Use
  Company Number: None

PATIENT
  Age: 85 Year
  Sex: Male
  Weight: 74.25 kg

DRUGS (10)
  1. ATORVASTATIN [Concomitant]
     Active Substance: ATORVASTATIN
  2. NITROGLYCERIN. [Concomitant]
     Active Substance: NITROGLYCERIN
  3. OMEPRAZOLE. [Concomitant]
     Active Substance: OMEPRAZOLE
  4. ERLEADA [Suspect]
     Active Substance: APALUTAMIDE
     Indication: PROSTATE CANCER
     Route: 048
     Dates: start: 20200226
  5. TESSALON [Concomitant]
     Active Substance: BENZONATATE
  6. METOPROLOL TARTRATE. [Concomitant]
     Active Substance: METOPROLOL TARTRATE
  7. SIMVASTATIN. [Concomitant]
     Active Substance: SIMVASTATIN
  8. CLOPIDOGREL [Concomitant]
     Active Substance: CLOPIDOGREL BISULFATE
  9. TAMSULOSIN [Concomitant]
     Active Substance: TAMSULOSIN
  10. WARFARIN [Concomitant]
     Active Substance: WARFARIN

REACTIONS (3)
  - Diarrhoea [None]
  - Weight decreased [None]
  - Emotional distress [None]

NARRATIVE: CASE EVENT DATE: 20200319
